FAERS Safety Report 14310079 (Version 1)
Quarter: 2017Q4

REPORT INFORMATION
  Report Type: Spontaneous
  Country: US (occurrence: US)
  Receive Date: 20171220
  Receipt Date: 20171220
  Transmission Date: 20180321
  Serious: Yes (Disabling)
  Sender: FDA-Public Use
  Company Number: None

PATIENT
  Age: 75 Year
  Sex: Female
  Weight: 63.5 kg

DRUGS (9)
  1. OMEGA-3 ACIDS [Concomitant]
     Active Substance: OMEGA-3 FATTY ACIDS
  2. MULTIVITAMIN [Concomitant]
     Active Substance: VITAMINS
  3. SYNTHROID [Concomitant]
     Active Substance: LEVOTHYROXINE SODIUM
  4. VITAMIN D [Concomitant]
     Active Substance: CHOLECALCIFEROL
  5. COQ10 [Concomitant]
     Active Substance: UBIDECARENONE
  6. BOTOX [Suspect]
     Active Substance: ONABOTULINUMTOXINA
     Indication: HYPERTONIC BLADDER
     Dates: start: 20121212, end: 20121212
  7. LIPITOR [Concomitant]
     Active Substance: ATORVASTATIN CALCIUM
  8. AMITRIPTYLINE [Concomitant]
     Active Substance: AMITRIPTYLINE
  9. CALCIUM [Concomitant]
     Active Substance: CALCIUM

REACTIONS (6)
  - Cystitis interstitial [None]
  - Pain [None]
  - Urinary retention [None]
  - Insomnia [None]
  - Hypertonic bladder [None]
  - Condition aggravated [None]

NARRATIVE: CASE EVENT DATE: 20121212
